FAERS Safety Report 22290098 (Version 4)
Quarter: 2023Q4

REPORT INFORMATION
  Report Type: Spontaneous
  Country: US (occurrence: US)
  Receive Date: 20230505
  Receipt Date: 20231123
  Transmission Date: 20240109
  Serious: Yes (Hospitalization, Other)
  Sender: FDA-Public Use
  Company Number: US-PFIZER INC-PV202300078957

PATIENT
  Age: 59 Year
  Sex: Female

DRUGS (2)
  1. INLYTA [Suspect]
     Active Substance: AXITINIB
     Dosage: 5 MG
     Dates: start: 20230426
  2. INLYTA [Suspect]
     Active Substance: AXITINIB
     Dosage: 3 TABLETS TWICE DAILY
     Route: 048
     Dates: end: 20230618

REACTIONS (9)
  - Transient ischaemic attack [Unknown]
  - Spinal operation [Unknown]
  - Aphonia [Unknown]
  - Insomnia [Unknown]
  - Feeling of body temperature change [Unknown]
  - Abdominal pain [Unknown]
  - Dysphonia [Unknown]
  - Fatigue [Unknown]
  - Abdominal discomfort [Unknown]
